FAERS Safety Report 6335816-8 (Version None)
Quarter: 2009Q3

REPORT INFORMATION
  Report Type: 
  Country: None (occurrence: None)
  Receive Date: 20090828
  Receipt Date: 20090817
  Transmission Date: 20100115
  Serious: No
  Sender: FDA-Public Use
  Company Number: 2009-0017

PATIENT
  Sex: Female

DRUGS (2)
  1. PROZAC [Suspect]
  2. TAMOXIFEN CITRATE [Concomitant]

REACTIONS (1)
  - BREAST CANCER RECURRENT [None]
